FAERS Safety Report 7754623-2 (Version None)
Quarter: 2011Q3

REPORT INFORMATION
  Report Type: 
  Country: None (occurrence: None)
  Receive Date: 20110915
  Receipt Date: 20110909
  Transmission Date: 20111222
  Serious: Yes (Other)
  Sender: FDA-Public Use
  Company Number: US-AMGEN-USASP2011046411

PATIENT
  Sex: Male

DRUGS (1)
  1. ENBREL [Suspect]
     Dosage: 25 MG, 2 TIMES/WK
     Route: 064
     Dates: start: 20000701, end: 20050101

REACTIONS (1)
  - FOETAL GROWTH RESTRICTION [None]
